FAERS Safety Report 16719118 (Version 4)
Quarter: 2019Q3

REPORT INFORMATION
  Report Type: Spontaneous
  Country: BR (occurrence: BR)
  Receive Date: 20190820
  Receipt Date: 20190912
  Transmission Date: 20191005
  Serious: Yes (Life-Threatening, Hospitalization, Other)
  Sender: FDA-Public Use
  Company Number: BR-AUROBINDO-AUR-APL-2019-054946

PATIENT
  Age: 69 Year
  Sex: Female
  Weight: 70 kg

DRUGS (5)
  1. CLOPIDOGREL [Suspect]
     Active Substance: CLOPIDOGREL BISULFATE
     Indication: THROMBOSIS PROPHYLAXIS
     Dosage: 75 MILLIGRAM
     Route: 048
     Dates: start: 20190719
  2. CLEXANE [Concomitant]
     Active Substance: ENOXAPARIN SODIUM
     Indication: ANTICOAGULANT THERAPY
     Dosage: 60 MILLIGRAM
     Route: 058
     Dates: start: 20190720
  3. AAS [Concomitant]
     Active Substance: ASPIRIN
     Indication: PLATELET AGGREGATION INHIBITION
     Dosage: 100 MILLIGRAM
     Route: 048
     Dates: start: 20190718
  4. CARVEDILOL. [Concomitant]
     Active Substance: CARVEDILOL
     Indication: VASODILATATION
     Dosage: 3.125 MILLIGRAM
     Route: 048
     Dates: start: 20190720
  5. CAPTOPRIL. [Concomitant]
     Active Substance: CAPTOPRIL
     Indication: HYPERTENSION
     Dosage: 12.5 MILLIGRAM
     Route: 048
     Dates: start: 20190718

REACTIONS (11)
  - Hypotension [Unknown]
  - Respiratory distress [Unknown]
  - Chest pain [Unknown]
  - Vomiting [Unknown]
  - Malaise [Unknown]
  - Vision blurred [Unknown]
  - Drug ineffective [Recovering/Resolving]
  - Acute myocardial infarction [Unknown]
  - Pain [Unknown]
  - Haemodynamic instability [Unknown]
  - Hyperhidrosis [Unknown]

NARRATIVE: CASE EVENT DATE: 20190722
